FAERS Safety Report 13348185 (Version 2)
Quarter: 2017Q1

REPORT INFORMATION
  Report Type: Report from Study
  Country: FR (occurrence: FR)
  Receive Date: 20170318
  Receipt Date: 20170324
  Transmission Date: 20170428
  Serious: Yes (Death, Hospitalization, Other)
  Sender: FDA-Public Use
  Company Number: FR-BRISTOL-MYERS SQUIBB COMPANY-BMS-2017-021627

PATIENT
  Age: 58 Year
  Sex: Male

DRUGS (1)
  1. NIVOLUMAB [Suspect]
     Active Substance: NIVOLUMAB
     Indication: LUNG NEOPLASM MALIGNANT
     Dosage: 260 MG, Q2WK
     Route: 042
     Dates: start: 20170216, end: 20170216

REACTIONS (4)
  - Malignant neoplasm progression [Fatal]
  - Mental fatigue [Unknown]
  - Osteosynthesis [Unknown]
  - Pathological fracture [Fatal]

NARRATIVE: CASE EVENT DATE: 20170224
